FAERS Safety Report 11182513 (Version 2)
Quarter: 2016Q3

REPORT INFORMATION
  Report Type: Spontaneous
  Country: US (occurrence: US)
  Receive Date: 20150611
  Receipt Date: 20160915
  Transmission Date: 20161109
  Serious: No
  Sender: FDA-Public Use
  Company Number: US-ASTELLAS-2015US017161

PATIENT
  Sex: Male

DRUGS (3)
  1. MEGESTROL [Concomitant]
     Active Substance: MEGESTROL
     Indication: HOT FLUSH
     Dosage: UNK UNK, UNKNOWN FREQ.
     Route: 065
  2. ALEVE [Concomitant]
     Active Substance: NAPROXEN SODIUM
     Indication: PRODUCT USED FOR UNKNOWN INDICATION
     Dosage: UNK UNK, UNKNOWN FREQ.
     Route: 065
  3. XTANDI [Suspect]
     Active Substance: ENZALUTAMIDE
     Indication: PROSTATE CANCER
     Dosage: 160 MG, ONCE DAILY (4X 40 MG) BY MOUTH
     Route: 048
     Dates: start: 20141005, end: 20160201

REACTIONS (6)
  - Gastrointestinal hypomotility [Unknown]
  - Calculus bladder [Unknown]
  - Depressed mood [Unknown]
  - Prostatic specific antigen increased [Unknown]
  - Nephrolithiasis [Unknown]
  - Constipation [Unknown]
